FAERS Safety Report 6702514-8 (Version None)
Quarter: 2010Q2

REPORT INFORMATION
  Report Type: 
  Country: None (occurrence: None)
  Receive Date: 20100429
  Receipt Date: 20100414
  Transmission Date: 20101027
  Serious: Yes (Other)
  Sender: FDA-Public Use
  Company Number: JP-PFIZER INC-2010053564

PATIENT

DRUGS (1)
  1. TOLTERODINE TARTRATE [Suspect]

REACTIONS (2)
  - DYSURIA [None]
  - URINARY RETENTION [None]
